FAERS Safety Report 6082502-8 (Version None)
Quarter: 2009Q1

REPORT INFORMATION
  Report Type: 
  Country: None (occurrence: None)
  Receive Date: 20090126
  Receipt Date: 20071219
  Transmission Date: 20090719
  Serious: Yes (Other)
  Sender: FDA-Public Use
  Company Number: 267294

PATIENT
  Age: 66 Year
  Sex: Male
  Weight: 83.9 kg

DRUGS (2)
  1. LEVEMIR [Suspect]
     Indication: INSULIN-REQUIRING TYPE 2 DIABETES MELLITUS
     Dosage: SUBCUTANEOUS
     Route: 058
  2. NOVOLOG [Suspect]
     Indication: INSULIN-REQUIRING TYPE 2 DIABETES MELLITUS
     Dosage: 60 IU, SUBCUTANEOUS
     Route: 058

REACTIONS (2)
  - HYPOGLYCAEMIA [None]
  - WRONG DRUG ADMINISTERED [None]
